FAERS Safety Report 23068817 (Version 7)
Quarter: 2025Q2

REPORT INFORMATION
  Report Type: Spontaneous
  Country: US (occurrence: US)
  Receive Date: 20231016
  Receipt Date: 20250423
  Transmission Date: 20250717
  Serious: Yes (Hospitalization, Disabling, Other)
  Sender: BRISTOL-MYERS SQUIBB COMPANY
  Company Number: US-BRISTOL-MYERS SQUIBB COMPANY-2023-146701

PATIENT
  Age: 70 Year
  Sex: Female

DRUGS (12)
  1. REVLIMID [Suspect]
     Active Substance: LENALIDOMIDE
     Indication: Plasma cell myeloma
     Route: 048
     Dates: start: 20230810
  2. REVLIMID [Suspect]
     Active Substance: LENALIDOMIDE
     Route: 048
     Dates: start: 20240303
  3. REVLIMID [Suspect]
     Active Substance: LENALIDOMIDE
     Dosage: ONGOING MAINTENANCE THERAPY
     Route: 048
     Dates: start: 20230108
  4. REVLIMID [Suspect]
     Active Substance: LENALIDOMIDE
     Dates: start: 20240306
  5. DEXAMETHASONE [Suspect]
     Active Substance: DEXAMETHASONE
     Indication: Plasma cell myeloma
     Dates: start: 20230206, end: 20230420
  6. CARFILZOMIB [Suspect]
     Active Substance: CARFILZOMIB
     Indication: Plasma cell myeloma
     Route: 042
     Dates: start: 20230918, end: 20231120
  7. CARFILZOMIB [Suspect]
     Active Substance: CARFILZOMIB
     Route: 042
     Dates: end: 20231120
  8. BORTEZOMIB [Suspect]
     Active Substance: BORTEZOMIB
     Indication: Plasma cell myeloma
     Dates: start: 20230206, end: 20230420
  9. ASPIRIN [Concomitant]
     Active Substance: ASPIRIN
     Indication: Thrombosis prophylaxis
  10. ACYCLOVIR [Concomitant]
     Active Substance: ACYCLOVIR
     Indication: Product used for unknown indication
     Dates: end: 202312
  11. BACTRIM [Concomitant]
     Active Substance: SULFAMETHOXAZOLE\TRIMETHOPRIM
     Indication: Product used for unknown indication
     Dates: end: 202312
  12. XGEVA [Concomitant]
     Active Substance: DENOSUMAB
     Indication: Product used for unknown indication
     Dates: start: 20230108, end: 202312

REACTIONS (24)
  - Product dose omission issue [Unknown]
  - Gastrointestinal inflammation [Recovered/Resolved]
  - Colitis [Recovered/Resolved]
  - Failure to thrive [Unknown]
  - Asthenia [Unknown]
  - Fatigue [Unknown]
  - Hallucination, visual [Unknown]
  - Acute kidney injury [Recovering/Resolving]
  - Lactic acidosis [Unknown]
  - Tachycardia paroxysmal [Unknown]
  - Cystitis [Unknown]
  - Neuropathy peripheral [Unknown]
  - Osteoarthritis [Unknown]
  - Hypertension [Unknown]
  - Palpitations [Unknown]
  - Aortic dilatation [Unknown]
  - Pyrexia [Unknown]
  - Neurological symptom [Unknown]
  - Osteolysis [Unknown]
  - Nail disorder [Unknown]
  - Skin discolouration [Unknown]
  - Deafness [Unknown]
  - Obstructive sleep apnoea syndrome [Unknown]
  - Pathological fracture [Unknown]

NARRATIVE: CASE EVENT DATE: 20230101
